FAERS Safety Report 17824436 (Version 1)
Quarter: 2020Q2

REPORT INFORMATION
  Report Type: Spontaneous
  Country: FR (occurrence: FR)
  Receive Date: 20200526
  Receipt Date: 20200526
  Transmission Date: 20200714
  Serious: Yes (Death)
  Sender: FDA-Public Use
  Company Number: FR-TEVA-2020-FR-1238847

PATIENT
  Age: 55 Year
  Sex: Male
  Weight: 61.6 kg

DRUGS (12)
  1. ACIDE FOLIQUE [Concomitant]
     Active Substance: FOLIC ACID
  2. CETIRIZINE (DICHLORHYDRATE DE) [Concomitant]
     Active Substance: CETIRIZINE HYDROCHLORIDE
  3. TINZAPARINE SODIQUE ((MAMMIFERE/PORC/MUQUEUSE INTESTINALE)) [Concomitant]
     Active Substance: TINZAPARIN SODIUM
  4. FUROSEMIDE. [Concomitant]
     Active Substance: FUROSEMIDE
  5. PREDNISOLONE. [Suspect]
     Active Substance: PREDNISOLONE
     Indication: SQUAMOUS CELL CARCINOMA OF LUNG
     Route: 048
     Dates: start: 20200319, end: 20200403
  6. OXYNORMORO [Concomitant]
     Active Substance: OXYCODONE HYDROCHLORIDE
  7. MOVICOL [Concomitant]
     Active Substance: POLYETHYLENE GLYCOL 3350\POTASSIUM CHLORIDE\SODIUM BICARBONATE\SODIUM CHLORIDE
  8. GABAPENTINE [Concomitant]
     Active Substance: GABAPENTIN
  9. SERESTA [Concomitant]
     Active Substance: OXAZEPAM
  10. OXYCODONE [Concomitant]
     Active Substance: OXYCODONE
  11. BROMAZEPAM [Concomitant]
     Active Substance: BROMAZEPAM
  12. PARACETAMOL [Concomitant]
     Active Substance: ACETAMINOPHEN

REACTIONS (2)
  - Condition aggravated [Fatal]
  - COVID-19 [Fatal]

NARRATIVE: CASE EVENT DATE: 20200324
